FAERS Safety Report 6039059-7 (Version None)
Quarter: 2009Q1

REPORT INFORMATION
  Report Type: 
  Country: None (occurrence: None)
  Receive Date: 20090115
  Receipt Date: 20090105
  Transmission Date: 20090719
  Serious: Yes (Other)
  Sender: FDA-Public Use
  Company Number: DE-ELI_LILLY_AND_COMPANY-DE200811000785

PATIENT
  Sex: Male
  Weight: 89 kg

DRUGS (3)
  1. STRATTERA [Suspect]
     Indication: ATTENTION DEFICIT/HYPERACTIVITY DISORDER
     Dosage: 60 MG, DAILY (1/D)
     Route: 048
     Dates: start: 20050606, end: 20081104
  2. SULPIRID [Concomitant]
     Dosage: 400 MG, DAILY (1/D)
     Route: 065
     Dates: start: 20080601
  3. TIAPRIDE [Concomitant]
     Dosage: 400 MG, UNKNOWN
     Route: 065

REACTIONS (3)
  - FEAR [None]
  - FEELING ABNORMAL [None]
  - SUICIDAL IDEATION [None]
